FAERS Safety Report 23942997 (Version 1)
Quarter: 2024Q2

REPORT INFORMATION
  Report Type: Spontaneous
  Country: US (occurrence: US)
  Receive Date: 20240605
  Receipt Date: 20240605
  Transmission Date: 20240716
  Serious: No
  Sender: FDA-Public Use
  Company Number: US-PFIZER INC-PV202400073227

PATIENT
  Age: 77 Year
  Sex: Female

DRUGS (4)
  1. IBRANCE [Suspect]
     Active Substance: PALBOCICLIB
     Indication: Breast cancer
     Dosage: 125 MG, CYCLIC FOR 21 DAYS (3 WEEKS)
     Route: 048
     Dates: end: 20200210
  2. IBRANCE [Suspect]
     Active Substance: PALBOCICLIB
     Dosage: 125 MG, CYCLIC, FOR 21 DAYS, REST 7 DAYS THEN RECYCLE
     Dates: end: 20200930
  3. IBRANCE [Suspect]
     Active Substance: PALBOCICLIB
     Dosage: 125 MG, CYCLIC, FOR 21 DAYS, REST 7 DAYS THEN RECYCLE
     Route: 048
     Dates: end: 20220828
  4. FULVESTRANT [Suspect]
     Active Substance: FULVESTRANT
     Dosage: 500 MG
     Dates: start: 20200414, end: 20220828

REACTIONS (1)
  - Drug intolerance [Unknown]
